FAERS Safety Report 18733387 (Version 1)
Quarter: 2021Q1

REPORT INFORMATION
  Report Type: Report from Study
  Country: IT (occurrence: IT)
  Receive Date: 20210113
  Receipt Date: 20210113
  Transmission Date: 20210419
  Serious: Yes (Other)
  Sender: FDA-Public Use
  Company Number: IT-TEVA-2021-IT-1867137

PATIENT
  Age: 62 Year
  Sex: Female

DRUGS (3)
  1. LOSARTAN. [Concomitant]
     Active Substance: LOSARTAN
     Indication: HYPERTENSION
  2. EUTIROX [Concomitant]
     Active Substance: LEVOTHYROXINE SODIUM
     Indication: AUTOIMMUNE THYROIDITIS
  3. ANASTROZOLO TEVA [Suspect]
     Active Substance: ANASTROZOLE
     Indication: BREAST CANCER IN SITU
     Dosage: 1 MG
     Dates: start: 20190319, end: 20200731

REACTIONS (3)
  - Arthralgia [Recovered/Resolved]
  - Myalgia [Recovered/Resolved]
  - Joint stabilisation [Recovered/Resolved]

NARRATIVE: CASE EVENT DATE: 20190401
